FAERS Safety Report 19599168 (Version 1)
Quarter: 2021Q3

REPORT INFORMATION
  Report Type: Spontaneous
  Country: US (occurrence: US)
  Receive Date: 20210723
  Receipt Date: 20210723
  Transmission Date: 20211014
  Serious: Yes (Hospitalization)
  Sender: FDA-Public Use
  Company Number: None

PATIENT
  Sex: Male

DRUGS (22)
  1. ALLOPURINOL. [Concomitant]
     Active Substance: ALLOPURINOL
  2. AZELASTINE. [Concomitant]
     Active Substance: AZELASTINE HYDROCHLORIDE
  3. FERROUS SULFATE. [Concomitant]
     Active Substance: FERROUS SULFATE
  4. NITROFURANTIN [Concomitant]
     Active Substance: NITROFURANTOIN
  5. ALBUTEROL. [Concomitant]
     Active Substance: ALBUTEROL
  6. BREO ELLIPTA [Concomitant]
     Active Substance: FLUTICASONE FUROATE\VILANTEROL TRIFENATATE
  7. DESONIDE. [Concomitant]
     Active Substance: DESONIDE
  8. LOVASTATIN. [Concomitant]
     Active Substance: LOVASTATIN
  9. ARANESP [Suspect]
     Active Substance: DARBEPOETIN ALFA
     Indication: NEPHROGENIC ANAEMIA
     Dosage: ?          OTHER FREQUENCY:Q2WKS;?
     Route: 058
     Dates: start: 20210702
  10. TADALAFIL. [Concomitant]
     Active Substance: TADALAFIL
  11. INSULIN [Concomitant]
     Active Substance: INSULIN NOS
  12. BASAGLAR [Concomitant]
     Active Substance: INSULIN GLARGINE
  13. FENOFIBRATE. [Concomitant]
     Active Substance: FENOFIBRATE
  14. URO?MP [Concomitant]
     Active Substance: HYOSCYAMINE SULFATE\METHENAMINE\METHYLENE BLUE\PHENYL SALICYLATE\SODIUM PHOSPHATE, MONOBASIC, MONOHYDRATE
  15. ASPIRIN. [Concomitant]
     Active Substance: ASPIRIN
  16. FAMOTIDINE. [Concomitant]
     Active Substance: FAMOTIDINE
  17. METOPROL TAR [Concomitant]
  18. TRAZODONE [Concomitant]
     Active Substance: TRAZODONE HYDROCHLORIDE
  19. CALCIUM [Concomitant]
     Active Substance: CALCIUM
  20. CETIRIZINE [Concomitant]
     Active Substance: CETIRIZINE HYDROCHLORIDE
  21. DUTASTERIDE. [Concomitant]
     Active Substance: DUTASTERIDE
  22. TRIAMCINOLON [Concomitant]

REACTIONS (1)
  - Hospitalisation [None]
